FAERS Safety Report 9898080 (Version 1)
Quarter: 2014Q1

REPORT INFORMATION
  Report Type: Spontaneous
  Country: GB (occurrence: GB)
  Receive Date: 20140214
  Receipt Date: 20140214
  Transmission Date: 20141002
  Serious: Yes (Death, Hospitalization)
  Sender: FDA-Public Use
  Company Number: GB-JNJFOC-20140206843

PATIENT
  Age: 78 Year
  Sex: Male

DRUGS (17)
  1. XARELTO [Suspect]
     Indication: CEREBROVASCULAR ACCIDENT PROPHYLAXIS
     Route: 048
     Dates: start: 20140115, end: 20140122
  2. XARELTO [Suspect]
     Indication: ISCHAEMIC STROKE
     Route: 048
     Dates: start: 20140115, end: 20140122
  3. XARELTO [Suspect]
     Indication: ATRIAL FIBRILLATION
     Route: 048
     Dates: start: 20140115, end: 20140122
  4. FOLIC ACID [Concomitant]
     Route: 065
  5. GLYCERYL TRINITRATE [Concomitant]
     Route: 065
  6. DOXAZOSIN [Concomitant]
     Route: 065
  7. FERROUS SULPHATE [Concomitant]
     Route: 065
  8. HYDRALAZINE [Concomitant]
     Route: 065
  9. LISINOPRIL [Concomitant]
     Route: 065
  10. METHOTREXATE [Concomitant]
     Indication: RHEUMATOID ARTHRITIS
     Route: 065
  11. OMEPRAZOLE [Concomitant]
     Route: 065
  12. SALBUTAMOL [Concomitant]
     Route: 065
  13. SIMVASTATINE [Concomitant]
     Route: 065
  14. DIGOXIN [Concomitant]
     Route: 065
  15. SPIROLACTON [Concomitant]
     Route: 065
  16. BUMETANIDE [Concomitant]
     Route: 065
  17. CO-CODAMOL [Concomitant]
     Route: 065

REACTIONS (2)
  - Cerebellar haemorrhage [Fatal]
  - Unresponsive to stimuli [Not Recovered/Not Resolved]
